FAERS Safety Report 10985681 (Version 1)
Quarter: 2015Q2

REPORT INFORMATION
  Report Type: Spontaneous
  Country: US (occurrence: US)
  Receive Date: 20150404
  Receipt Date: 20150404
  Transmission Date: 20150821
  Serious: No
  Sender: FDA-Public Use
  Company Number: US-SA-2014SA003053

PATIENT
  Age: 69 Year
  Sex: Female

DRUGS (2)
  1. ALLEGRA-D [Suspect]
     Active Substance: FEXOFENADINE\PSEUDOEPHEDRINE
     Indication: SINUS CONGESTION
     Dosage: TAKEN FROM- ABOUT 3 YEARS AGO
     Route: 048
  2. ALLEGRA-D [Suspect]
     Active Substance: FEXOFENADINE\PSEUDOEPHEDRINE
     Indication: PARANASAL SINUS DISCOMFORT
     Dosage: TAKEN FROM- ABOUT 3 YEARS AGO
     Route: 048

REACTIONS (5)
  - Medication residue present [Unknown]
  - Therapeutic response decreased [Unknown]
  - Sinus headache [Not Recovered/Not Resolved]
  - Erythema [Not Recovered/Not Resolved]
  - Underdose [Unknown]
